FAERS Safety Report 7541800-9 (Version None)
Quarter: 2011Q2

REPORT INFORMATION
  Report Type: 
  Country: None (occurrence: None)
  Receive Date: 20110613
  Receipt Date: 20110531
  Transmission Date: 20111010
  Serious: Yes (Hospitalization)
  Sender: FDA-Public Use
  Company Number: ES-JNJFOC-20110600637

PATIENT
  Age: 53 Year
  Sex: Female

DRUGS (5)
  1. AZATHIOPRINE [Concomitant]
     Indication: CROHN'S DISEASE
  2. ADALIMUMAB [Concomitant]
     Indication: CROHN'S DISEASE
     Dosage: INDUCTION DOSE 80/40 MG
  3. ADALIMUMAB [Concomitant]
     Dosage: MAINTENANCE DOSE
  4. INFLIXIMAB, RECOMBINANT [Suspect]
     Route: 042
  5. INFLIXIMAB, RECOMBINANT [Suspect]
     Indication: CROHN'S DISEASE
     Route: 042

REACTIONS (2)
  - MENINGITIS TUBERCULOUS [None]
  - LARGE INTESTINE PERFORATION [None]
